FAERS Safety Report 9297860 (Version 3)
Quarter: 2013Q2

REPORT INFORMATION
  Report Type: Spontaneous
  Country: US (occurrence: US)
  Receive Date: 20130520
  Receipt Date: 20130627
  Transmission Date: 20140414
  Serious: Yes (Hospitalization)
  Sender: FDA-Public Use
  Company Number: US-JNJFOC-20130505687

PATIENT
  Age: 59 Year
  Sex: Male

DRUGS (7)
  1. STELARA [Suspect]
     Indication: PSORIASIS
     Dosage: 5 INJECTIONS
     Route: 058
     Dates: start: 20110630, end: 201301
  2. COMBIVENT [Concomitant]
     Route: 065
     Dates: start: 20110302
  3. ADVAIR [Concomitant]
     Route: 048
     Dates: start: 20110302
  4. LIBRIUM [Concomitant]
     Route: 065
     Dates: start: 20100128
  5. AMBIEN [Concomitant]
     Route: 065
     Dates: start: 20100128
  6. HYDROCODONE [Concomitant]
     Dosage: 10MG-66MG
     Route: 065
  7. ACETAMINOPHEN [Concomitant]
     Route: 065

REACTIONS (1)
  - Pneumonia fungal [Not Recovered/Not Resolved]
